FAERS Safety Report 19656791 (Version 1)
Quarter: 2021Q3

REPORT INFORMATION
  Report Type: Spontaneous
  Country: US (occurrence: US)
  Receive Date: 20210803
  Receipt Date: 20210803
  Transmission Date: 20211014
  Serious: Yes (Hospitalization)
  Sender: FDA-Public Use
  Company Number: None

PATIENT
  Age: 51 Year
  Sex: Male

DRUGS (1)
  1. AMBRISENTAN 10MG TABLETS 30/BO: 10MG [Suspect]
     Active Substance: AMBRISENTAN
     Indication: PULMONARY HYPERTENSION
     Route: 048
     Dates: start: 20200115

REACTIONS (5)
  - Idiopathic pulmonary fibrosis [None]
  - Acute respiratory failure [None]
  - Cardiac failure [None]
  - Pneumonia [None]
  - Respiratory failure [None]

NARRATIVE: CASE EVENT DATE: 20210722
